FAERS Safety Report 7542684-5 (Version None)
Quarter: 2011Q2

REPORT INFORMATION
  Report Type: 
  Country: None (occurrence: None)
  Receive Date: 20110613
  Receipt Date: 20110606
  Transmission Date: 20111010
  Serious: Yes (Other)
  Sender: FDA-Public Use
  Company Number: B0720677A

PATIENT
  Age: 36 Year
  Sex: Male

DRUGS (1)
  1. ALLI [Suspect]
     Dosage: 120MG PER DAY
     Route: 048
     Dates: start: 20100101, end: 20110505

REACTIONS (5)
  - PRURITUS [None]
  - DISCOMFORT [None]
  - VIRAL INFECTION [None]
  - ARTHRALGIA [None]
  - TRANSAMINASES INCREASED [None]
